FAERS Safety Report 6336156-3 (Version None)
Quarter: 2009Q3

REPORT INFORMATION
  Report Type: 
  Country: None (occurrence: None)
  Receive Date: 20090831
  Receipt Date: 20090831
  Transmission Date: 20100115
  Serious: Yes (Other)
  Sender: FDA-Public Use
  Company Number: None

PATIENT
  Age: 35 Year
  Sex: Female
  Weight: 68.9467 kg

DRUGS (1)
  1. REGLAN [Suspect]
     Dosage: 1  3 TIMES PER DAY PO
     Route: 048
     Dates: start: 20090202, end: 20090315

REACTIONS (5)
  - ACTIVITIES OF DAILY LIVING IMPAIRED [None]
  - ANXIETY [None]
  - DEPRESSION [None]
  - FORMICATION [None]
  - TREMOR [None]
